FAERS Safety Report 20411101 (Version 1)
Quarter: 2022Q1

REPORT INFORMATION
  Report Type: Spontaneous
  Country: US (occurrence: None)
  Receive Date: 20220201
  Receipt Date: 20220201
  Transmission Date: 20220423
  Serious: Yes (Hospitalization)
  Sender: FDA-Public Use
  Company Number: None

PATIENT
  Age: 74 Year
  Sex: Male
  Weight: 55 kg

DRUGS (2)
  1. SULFAMETHOXAZOLE\TRIMETHOPRIM [Suspect]
     Active Substance: SULFAMETHOXAZOLE\TRIMETHOPRIM
     Indication: Urinary tract infection
     Dosage: FREQUENCY : TWICE A DAY;?
     Route: 048
     Dates: start: 20220115, end: 20220125
  2. SILVER SULFADIAZINE [Suspect]
     Active Substance: SILVER SULFADIAZINE
     Indication: Balanoposthitis
     Dosage: FREQUENCY : TWICE A DAY;?
     Route: 061
     Dates: start: 20220125, end: 20220127

REACTIONS (9)
  - Stomatitis [None]
  - Dermatitis exfoliative generalised [None]
  - Blister [None]
  - Lip swelling [None]
  - Swollen tongue [None]
  - Pain [None]
  - Erythema [None]
  - Rash [None]
  - Blister rupture [None]

NARRATIVE: CASE EVENT DATE: 20220127
